FAERS Safety Report 11110270 (Version 1)
Quarter: 2015Q2

REPORT INFORMATION
  Report Type: Spontaneous
  Country: US (occurrence: None)
  Receive Date: 20150512
  Receipt Date: 20150512
  Transmission Date: 20150821
  Serious: Yes (Hospitalization)
  Sender: FDA-Public Use
  Company Number: None

PATIENT
  Age: 69 Year
  Sex: Female
  Weight: 65.4 kg

DRUGS (1)
  1. GEMCITABINE HYDROCHLORIDE. [Suspect]
     Active Substance: GEMCITABINE HYDROCHLORIDE
     Dates: end: 20150403

REACTIONS (6)
  - Urinary tract infection [None]
  - Headache [None]
  - Device related infection [None]
  - Metastases to central nervous system [None]
  - Catheter site erythema [None]
  - Staphylococcus test positive [None]

NARRATIVE: CASE EVENT DATE: 20150405
